FAERS Safety Report 5254025-7 (Version None)
Quarter: 2007Q1

REPORT INFORMATION
  Report Type: 
  Country: None (occurrence: None)
  Receive Date: 20061201
  Receipt Date: 20060810
  Transmission Date: 20070707
  Serious: No
  Sender: FDA-Public Use
  Company Number: 2006PV019175

PATIENT
  Age: 62 Year
  Sex: Male

DRUGS (8)
  1. BYETTA [Suspect]
     Indication: DRUG USE FOR UNKNOWN INDICATION
     Dosage: SEE IMAGE
     Dates: start: 20060221, end: 20060328
  2. BYETTA [Suspect]
     Indication: DRUG USE FOR UNKNOWN INDICATION
     Dosage: SEE IMAGE
     Dates: start: 20060329
  3. ACTOS [Concomitant]
  4. LIPITOR [Concomitant]
  5. PROZAC [Concomitant]
  6. FLOMAX [Concomitant]
  7. TORSEMIDE [Concomitant]
  8. POTASSIUM ACETATE [Concomitant]

REACTIONS (2)
  - EYE DISORDER [None]
  - VISION BLURRED [None]
